FAERS Safety Report 8192161-6 (Version None)
Quarter: 2012Q1

REPORT INFORMATION
  Report Type: 
  Country: None (occurrence: None)
  Receive Date: 20120307
  Receipt Date: 20120301
  Transmission Date: 20120608
  Serious: Yes (Other)
  Sender: FDA-Public Use
  Company Number: US-PFIZER INC-2012055428

PATIENT
  Sex: Male
  Weight: 81.63 kg

DRUGS (6)
  1. LIPITOR [Suspect]
     Dosage: UNK
     Route: 048
  2. GLYBURIDE [Concomitant]
     Indication: DIABETES MELLITUS
     Dosage: 0.25 MG DAILY
  3. LIPITOR [Suspect]
     Dosage: 20 MG, DAILY
     Route: 048
  4. COUMADIN [Concomitant]
     Indication: ANTICOAGULANT THERAPY
     Dosage: UNK
  5. METFORMIN [Concomitant]
     Indication: DIABETES MELLITUS
     Dosage: 500 MG TWO TIMES A DAY
  6. DIGOXIN [Concomitant]
     Indication: HEART RATE ABNORMAL
     Dosage: 0.25 MG DAILY

REACTIONS (3)
  - ARTHRALGIA [None]
  - ARTERIAL DISORDER [None]
  - MYALGIA [None]
